FAERS Safety Report 10740487 (Version 2)
Quarter: 2015Q1

REPORT INFORMATION
  Report Type: Spontaneous
  Country: US (occurrence: US)
  Receive Date: 20150127
  Receipt Date: 20150202
  Transmission Date: 20150721
  Serious: No
  Sender: FDA-Public Use
  Company Number: US-LEO PHARMA-231367

PATIENT
  Age: 81 Year
  Sex: Female

DRUGS (1)
  1. PICATO [Suspect]
     Active Substance: INGENOL MEBUTATE
     Indication: ACTINIC KERATOSIS
     Dates: start: 20141120, end: 20141122

REACTIONS (6)
  - Drug administered at inappropriate site [Unknown]
  - Tongue discolouration [Recovered/Resolved]
  - Ageusia [Recovering/Resolving]
  - Application site dryness [Recovered/Resolved]
  - Dry mouth [Recovered/Resolved]
  - Application site erythema [Recovered/Resolved]

NARRATIVE: CASE EVENT DATE: 20141120
